FAERS Safety Report 9986426 (Version 1)
Quarter: 2014Q1

REPORT INFORMATION
  Report Type: Report from Study
  Country: US (occurrence: US)
  Receive Date: 20140307
  Receipt Date: 20140307
  Transmission Date: 20141002
  Serious: Yes (Hospitalization)
  Sender: FDA-Public Use
  Company Number: US-009507513-1403USA002103

PATIENT
  Age: 63 Year
  Sex: Male
  Weight: 110.66 kg

DRUGS (4)
  1. FOSAPREPITANT DIMEGLUMINE [Suspect]
     Indication: PROPHYLAXIS OF NAUSEA AND VOMITING
     Dosage: 150 MG Q48HRS
     Route: 042
     Dates: start: 20140217, end: 20140217
  2. FOSAPREPITANT DIMEGLUMINE [Suspect]
     Dosage: UNK, QD
     Route: 042
     Dates: start: 20140219, end: 20140219
  3. FOSAPREPITANT DIMEGLUMINE [Suspect]
     Dosage: UNK, QD
     Route: 042
     Dates: start: 20140221, end: 20140221
  4. PROLEUKIN [Suspect]
     Indication: METASTATIC RENAL CELL CARCINOMA
     Dosage: 76 MILLION UNITS, Q12H
     Dates: start: 20140217, end: 20140221

REACTIONS (2)
  - Pneumonia [Unknown]
  - Sepsis [Unknown]
